FAERS Safety Report 8363484-2 (Version None)
Quarter: 2012Q1

REPORT INFORMATION
  Report Type: 
  Country: None (occurrence: None)
  Receive Date: 20120323
  Receipt Date: 20110719
  Transmission Date: 20120608
  Serious: Yes (Hospitalization)
  Sender: FDA-Public Use
  Company Number: 163-21880-11041483

PATIENT
  Age: 67 Year
  Sex: Female

DRUGS (2)
  1. AREDIA [Concomitant]
  2. REVLIMID [Suspect]
     Indication: MULTIPLE MYELOMA
     Dosage: 5 MG, 1 IN 2 D, PO
     Route: 048
     Dates: start: 20080818

REACTIONS (2)
  - GASTROENTERITIS SALMONELLA [None]
  - DIARRHOEA [None]
